FAERS Safety Report 21252165 (Version 1)
Quarter: 2022Q3

REPORT INFORMATION
  Report Type: Report from Study
  Country: US (occurrence: US)
  Receive Date: 20220825
  Receipt Date: 20220825
  Transmission Date: 20221027
  Serious: Yes (Hospitalization)
  Sender: FDA-Public Use
  Company Number: US-UCBSA-2022049809

PATIENT
  Sex: Male

DRUGS (1)
  1. ROTIGOTINE [Suspect]
     Active Substance: ROTIGOTINE
     Indication: Parkinson^s disease
     Dosage: 3MG- 1 PATCH DAILY
     Route: 062

REACTIONS (3)
  - General physical health deterioration [Unknown]
  - COVID-19 [Recovered/Resolved]
  - Tremor [Recovering/Resolving]
